FAERS Safety Report 21446981 (Version 1)
Quarter: 2022Q4

REPORT INFORMATION
  Report Type: Spontaneous
  Country: IT (occurrence: IT)
  Receive Date: 20221012
  Receipt Date: 20221012
  Transmission Date: 20230113
  Serious: Yes (Other)
  Sender: FDA-Public Use
  Company Number: None

PATIENT
  Age: 73 Year
  Sex: Male

DRUGS (4)
  1. SOTALOL [Suspect]
     Active Substance: SOTALOL
     Indication: Atrial fibrillation
     Dosage: 80 MILLIGRAM DAILY; THERAPY END DATE : NOT ASKED,UNIT DOSE : 80 MG,  FREQUENCY TIME : 1 DAYS
     Route: 065
     Dates: start: 20130619
  2. SINERTEC [Concomitant]
     Indication: Hypertension
     Dosage: UNIT DOSE : 1 DOSAGE FORMS, SINERTEC 20MG / 6MG / DAY
  3. ALFUZOSIN HYDROCHLORIDE [Concomitant]
     Active Substance: ALFUZOSIN HYDROCHLORIDE
     Indication: Benign prostatic hyperplasia
     Dosage: 10 MILLIGRAM DAILY; UNIT DOSE : 10 MG, FREQUENCY TIME : 1 DAYS
  4. ATORVASTATIN [Concomitant]
     Active Substance: ATORVASTATIN
     Indication: Hypercholesterolaemia
     Dosage: 10 MILLIGRAM DAILY; UNIT DOSE : 10 MG, FREQUENCY TIME : 1 DAYS

REACTIONS (1)
  - Ventricular extrasystoles [Recovered/Resolved]

NARRATIVE: CASE EVENT DATE: 20220117
